FAERS Safety Report 6760166-5 (Version None)
Quarter: 2010Q2

REPORT INFORMATION
  Report Type: 
  Country: None (occurrence: None)
  Receive Date: 20100608
  Receipt Date: 20100527
  Transmission Date: 20101027
  Serious: Yes (Life-Threatening, Hospitalization)
  Sender: FDA-Public Use
  Company Number: JP-SANOFI-AVENTIS-2010SA013375

PATIENT
  Age: 87 Year
  Sex: Female

DRUGS (2)
  1. LASIX [Suspect]
     Route: 048
     Dates: start: 20091214, end: 20091223
  2. GLYCYRRHIZIC ACID [Suspect]
     Indication: DEMENTIA
     Route: 048
     Dates: end: 20091223

REACTIONS (5)
  - GRAND MAL CONVULSION [None]
  - HYPOCALCAEMIA [None]
  - HYPOKALAEMIA [None]
  - HYPOMAGNESAEMIA [None]
  - PSEUDOALDOSTERONISM [None]
